FAERS Safety Report 8980017 (Version 1)
Quarter: 2012Q4

REPORT INFORMATION
  Report Type: 
  Country: BR (occurrence: BR)
  Receive Date: 20121221
  Receipt Date: 20121221
  Transmission Date: 20130627
  Serious: Yes (Life-Threatening, Hospitalization, Other)
  Sender: FDA-Public Use
  Company Number: CHNY2012BR000764

PATIENT
  Age: 55 Year
  Sex: Female
  Weight: 63 kg

DRUGS (6)
  1. CIBALENAA [Suspect]
     Indication: PAIN
     Dosage: 1 DF, QD
     Route: 048
  2. PROPRANOLOL [Suspect]
     Dosage: Unk, Unk
  3. LOSARTAN [Suspect]
     Indication: DEPRESSION
     Dosage: 1 DF, QD
     Route: 048
  4. ALLOPURINOL [Concomitant]
     Dosage: Unk, Unk
  5. HYDROCHLOROTHIAZIDE [Concomitant]
     Dosage: Unk, Unk
  6. DRUG THERAPY NOS [Concomitant]
     Dosage: Unk, Unk

REACTIONS (22)
  - Coma [Recovered/Resolved]
  - Loss of consciousness [Recovered/Resolved]
  - Infarction [Recovered/Resolved]
  - Dyspnoea [Recovered/Resolved]
  - Hypertension [Recovered/Resolved]
  - Hyperhidrosis [Recovered/Resolved]
  - Nausea [Recovered/Resolved]
  - Cardiovascular disorder [Recovered/Resolved]
  - Gout [Recovered/Resolved]
  - Panic disorder [Recovered/Resolved]
  - Rheumatoid arthritis [Recovered/Resolved]
  - Bipolar disorder [Recovered/Resolved]
  - Agitation [Recovered/Resolved]
  - Burning sensation [Recovered/Resolved]
  - Blood pressure increased [Recovered/Resolved]
  - Pain [Recovered/Resolved]
  - Malaise [Recovered/Resolved]
  - Disease recurrence [Recovered/Resolved]
  - Blood uric acid [Recovered/Resolved]
  - Anxiety [Recovered/Resolved]
  - Therapeutic response unexpected [Unknown]
  - Nervousness [Recovered/Resolved]
